FAERS Safety Report 10744213 (Version 1)
Quarter: 2015Q1

REPORT INFORMATION
  Report Type: Spontaneous
  Country: US (occurrence: None)
  Receive Date: 20150126
  Receipt Date: 20150126
  Transmission Date: 20150721
  Serious: Yes (Other)
  Sender: FDA-Public Use
  Company Number: 2015SUP00008

PATIENT
  Age: 56 Year
  Sex: Female
  Weight: 127.4 kg

DRUGS (16)
  1. NEURONTIN [Suspect]
     Active Substance: GABAPENTIN
     Indication: NEURALGIA
     Route: 048
     Dates: start: 2009, end: 201404
  2. VITAMIN B-12 SHOTS [Concomitant]
  3. SIMVASTATIN. [Concomitant]
     Active Substance: SIMVASTATIN
  4. METOPROLOL (METOPROLOL) [Suspect]
     Active Substance: METOPROLOL
     Indication: BLOOD PRESSURE
     Route: 048
     Dates: start: 201405, end: 201411
  5. ALDCTONE [Concomitant]
  6. DULERA NEBULIZER [Concomitant]
  7. NABUMETONE. [Concomitant]
     Active Substance: NABUMETONE
  8. VYNANSE [Concomitant]
  9. PROTONIX [Concomitant]
     Active Substance: PANTOPRAZOLE SODIUM
  10. SINGULAIR [Concomitant]
     Active Substance: MONTELUKAST SODIUM
  11. TROKENDI XR [Suspect]
     Active Substance: TOPIRAMATE
     Indication: MIGRAINE
     Route: 048
     Dates: end: 2013
  12. CLIONAZEPAM [Concomitant]
  13. SYNTHROID [Concomitant]
     Active Substance: LEVOTHYROXINE SODIUM
  14. GAMUNEX INFUSION [Concomitant]
  15. LASIX [Concomitant]
     Active Substance: FUROSEMIDE
  16. TIZANIDINE (TIZANIDINE) [Concomitant]
     Active Substance: TIZANIDINE

REACTIONS (3)
  - Fall [None]
  - Concussion [None]
  - Off label use [None]

NARRATIVE: CASE EVENT DATE: 2013
